FAERS Safety Report 21647087 (Version 2)
Quarter: 2022Q4

REPORT INFORMATION
  Report Type: Spontaneous
  Country: US (occurrence: US)
  Receive Date: 20221127
  Receipt Date: 20221214
  Transmission Date: 20230113
  Serious: No
  Sender: FDA-Public Use
  Company Number: US-JNJFOC-20221154562

PATIENT
  Age: 63 Year
  Sex: Female

DRUGS (6)
  1. BENADRYL [Suspect]
     Active Substance: DIPHENHYDRAMINE HYDROCHLORIDE
     Indication: Swelling face
     Route: 065
     Dates: start: 202211
  2. BENADRYL [Suspect]
     Active Substance: DIPHENHYDRAMINE HYDROCHLORIDE
     Indication: Eye swelling
  3. PEPCID [Suspect]
     Active Substance: FAMOTIDINE
     Indication: Swelling face
     Route: 065
     Dates: start: 202211
  4. PEPCID [Suspect]
     Active Substance: FAMOTIDINE
     Indication: Eye swelling
  5. CORTISONE [Concomitant]
     Active Substance: CORTISONE
     Indication: Swelling face
     Route: 065
     Dates: start: 202211
  6. CORTISONE [Concomitant]
     Active Substance: CORTISONE
     Indication: Eye swelling

REACTIONS (2)
  - Off label use [Unknown]
  - Therapeutic response unexpected [Unknown]

NARRATIVE: CASE EVENT DATE: 20221101
